FAERS Safety Report 24670507 (Version 1)
Quarter: 2024Q4

REPORT INFORMATION
  Report Type: Spontaneous
  Country: JP (occurrence: JP)
  Receive Date: 20241127
  Receipt Date: 20241127
  Transmission Date: 20250115
  Serious: Yes (Other)
  Sender: MERCK
  Company Number: JP-MSD-M2024-48921

PATIENT
  Age: 15 Year
  Sex: Female

DRUGS (4)
  1. PREVYMIS [Suspect]
     Active Substance: LETERMOVIR
     Indication: Antiviral prophylaxis
     Dosage: 480 MILLIGRAM, QD
     Route: 048
  2. MARIBAVIR [Concomitant]
     Active Substance: MARIBAVIR
     Dosage: UNK
     Route: 065
  3. MARIBAVIR [Concomitant]
     Active Substance: MARIBAVIR
     Dosage: UNK
     Route: 065
  4. GANCICLOVIR [Concomitant]
     Active Substance: GANCICLOVIR
     Dosage: UNK
     Route: 065

REACTIONS (4)
  - Cytomegalovirus hepatitis [Unknown]
  - Cytomegalovirus infection [Recovered/Resolved]
  - Diarrhoea [Unknown]
  - Product use in unapproved indication [Unknown]
